FAERS Safety Report 19454035 (Version 1)
Quarter: 2021Q2

REPORT INFORMATION
  Report Type: Spontaneous
  Country: SE (occurrence: SE)
  Receive Date: 20210623
  Receipt Date: 20210623
  Transmission Date: 20210717
  Serious: Yes (Hospitalization)
  Sender: FDA-Public Use
  Company Number: SE-TEVA-2021-SE-1923990

PATIENT
  Age: 81 Year
  Sex: Female

DRUGS (15)
  1. GAVISCON   ORAL SUSPENSION [Concomitant]
     Dosage: 20 ML
     Dates: start: 20190911
  2. MIRTAZAPINE. [Concomitant]
     Active Substance: MIRTAZAPINE
     Dosage: 15 MG
     Dates: start: 20201116
  3. OXASCAND [Concomitant]
     Active Substance: OXAZEPAM
     Dosage: UNIT DOSE 5 MG,0.5 TABLET  VB
     Dates: start: 20201210
  4. ALVEDON 500 MG BRUSTABLETT [Concomitant]
     Dosage: 2 IF NEEDED, MAX 6 / DAY
     Dates: start: 20190911
  5. MOVICOL PULVER TILL ORAL LOSNING I DOSPASE [Concomitant]
     Dosage: UNIT DOSE :1 DOSAGE FORMS ,1?3 BAGS / DAY
     Dates: start: 20190426
  6. HALDOL 5 MG/ML INJEKTIONSVATSKA, LOSNING [Concomitant]
     Dosage: 0.1?0.5 ML VB, MAX 1 ML / DAY
     Route: 058
     Dates: start: 20200618
  7. BEHEPAN 1 MG/ML INJEKTIONSVATSKA, LOSNING [Concomitant]
     Dosage: 1 ML
     Route: 030
     Dates: start: 20181218
  8. OXASCAND [Concomitant]
     Active Substance: OXAZEPAM
     Dosage: UNIT DOSE :5 MG ,1 VB, MAX 3 / DAY
     Dates: start: 20190201
  9. ACETYLCYSTEIN 1A FARMA 200 MG BRUSTABLETT [Concomitant]
     Dosage: UNIT DOSE :200 MCG ,1?3 GG / DAY
     Dates: start: 20200707
  10. SIALANAR 320 MIKROGRAM/ML ORAL LOSNING [Concomitant]
     Dosage: 6 ML
     Dates: start: 20201119
  11. ONDANSETRON [Concomitant]
     Active Substance: ONDANSETRON
     Dosage: UNIT DOSE :4MG ,IF NEEDED 1?2 TIMES DAILY
     Dates: start: 20200227
  12. SPIRIVA 18 MIKROGRAM INHALATIONSPULVER, HARD KAPSEL [Concomitant]
     Dosage: 18 MCG
     Route: 055
     Dates: start: 20180118
  13. ROBINUL 0,2 MG/ML INJEKTIONSVATSKA, LOSNING [Concomitant]
     Dosage: UNIT DOSE :1 ML ,IF NEEDED, MAXIMUM 4 ML PER DAY
     Route: 058
     Dates: start: 20210505
  14. BUPRENORPHINE TEVA 5 MIKROGRAM/TIMME DEPOTPLASTER [Suspect]
     Active Substance: BUPRENORPHINE
     Dosage: DEPOT PATCHES
     Dates: end: 202105
  15. VAGIFEM 10 MIKROGRAM VAGINALTABLETT [Concomitant]
     Dosage: 20 MCG
     Dates: start: 20180131

REACTIONS (1)
  - Depressed level of consciousness [Recovering/Resolving]

NARRATIVE: CASE EVENT DATE: 20210522
